FAERS Safety Report 8419109-0 (Version None)
Quarter: 2012Q2

REPORT INFORMATION
  Report Type: 
  Country: None (occurrence: None)
  Receive Date: 20120607
  Receipt Date: 20120606
  Transmission Date: 20120825
  Serious: Yes (Death)
  Sender: FDA-Public Use
  Company Number: PHHY2012LB048434

PATIENT
  Sex: Female

DRUGS (4)
  1. TASIGNA [Suspect]
     Indication: CHRONIC MYELOID LEUKAEMIA
     Dosage: 800 MG, PER DAY
     Route: 048
     Dates: start: 20070101
  2. ZOLPIDEM [Concomitant]
     Dosage: 1 DF, PER DAY
     Route: 048
  3. DEANXIT [Concomitant]
     Dosage: 1 DF, PER DAY
     Route: 048
  4. LASIX [Concomitant]
     Dosage: 1 DF, DAY
     Route: 048

REACTIONS (1)
  - DEATH [None]
